FAERS Safety Report 4501507-9 (Version None)
Quarter: 2004Q4

REPORT INFORMATION
  Report Type: 
  Country: None (occurrence: None)
  Receive Date: 20041115
  Receipt Date: 20041108
  Transmission Date: 20050328
  Serious: Yes (Life-Threatening, Hospitalization, Disabling)
  Sender: FDA-Public Use
  Company Number: US-MERCK-0411USA01536

PATIENT
  Age: 88 Year
  Sex: Female

DRUGS (4)
  1. VIOXX [Suspect]
     Route: 048
  2. THYROID [Concomitant]
     Route: 065
  3. CARDIZEM [Concomitant]
     Route: 065
  4. PROTONIX [Concomitant]
     Route: 065

REACTIONS (5)
  - ASTHENIA [None]
  - DIFFICULTY IN WALKING [None]
  - GASTRIC DISORDER [None]
  - LOSS OF CONSCIOUSNESS [None]
  - WEIGHT DECREASED [None]
